FAERS Safety Report 8435974-5 (Version None)
Quarter: 2012Q2

REPORT INFORMATION
  Report Type: 
  Country: None (occurrence: None)
  Receive Date: 20120614
  Receipt Date: 20120609
  Transmission Date: 20120825
  Serious: Yes (Death, Life-Threatening, Hospitalization)
  Sender: FDA-Public Use
  Company Number: RU-SANOFI-AVENTIS-2012SA027456

PATIENT
  Age: 60 Year
  Sex: Female
  Weight: 67 kg

DRUGS (2)
  1. ENOXAPARIN SODIUM [Suspect]
     Indication: MYOCARDIAL INFARCTION
     Route: 058
     Dates: start: 20120417, end: 20120417
  2. CEFOPERAZONE/SULBACTAM [Interacting]
     Indication: CHRONIC OBSTRUCTIVE PULMONARY DISEASE
     Route: 042
     Dates: start: 20120417, end: 20120417

REACTIONS (4)
  - DRUG INTERACTION [None]
  - PULMONARY HAEMORRHAGE [None]
  - EPISTAXIS [None]
  - GASTRIC HAEMORRHAGE [None]
